FAERS Safety Report 9355451 (Version 1)
Quarter: 2013Q4

REPORT INFORMATION
  Report Type: Spontaneous
  Country: US (occurrence: None)
  Receive Date: 20130618
  Receipt Date: 20130618
  Transmission Date: 20140711
  Serious: Yes (Other)
  Sender: FDA-Public Use
  Company Number: None

PATIENT
  Age: 40 Year
  Sex: Female
  Weight: 68.04 kg

DRUGS (1)
  1. MALLINCKRODT METHADOSE ORAL CONCENTRATE 10 MG/ML [Suspect]
     Indication: DRUG DEPENDENCE
     Route: 048
     Dates: start: 20130605

REACTIONS (3)
  - Sedation [None]
  - Skin reaction [None]
  - Condition aggravated [None]
